FAERS Safety Report 23331860 (Version 1)
Quarter: 2023Q4

REPORT INFORMATION
  Report Type: Spontaneous
  Country: None (occurrence: FR)
  Receive Date: 20231222
  Receipt Date: 20231222
  Transmission Date: 20240109
  Serious: Yes (Life-Threatening, Hospitalization)
  Sender: FDA-Public Use
  Company Number: FR-B.Braun Medical Inc.-2149704

PATIENT
  Age: 24 Month
  Sex: Male
  Weight: 10 kg

DRUGS (9)
  1. ACETAMINOPHEN [Suspect]
     Active Substance: ACETAMINOPHEN
     Indication: Pain
  2. CLONIDINE HYDROCHLORIDE [Suspect]
     Active Substance: CLONIDINE HYDROCHLORIDE
  3. CEFTRIAXONE SODIUM [Suspect]
     Active Substance: CEFTRIAXONE SODIUM
  4. VANCOMYCIN HYDROCHLORIDE [Suspect]
     Active Substance: VANCOMYCIN HYDROCHLORIDE
  5. IBUPROFEN [Suspect]
     Active Substance: IBUPROFEN
  6. AMITRIPTYLINE HYDROCHLORIDE [Suspect]
     Active Substance: AMITRIPTYLINE HYDROCHLORIDE
  7. GENTAMICIN SULFATE [Suspect]
     Active Substance: GENTAMICIN SULFATE
  8. RIVOTRIL [Suspect]
     Active Substance: CLONAZEPAM
  9. CLONIDINE [Suspect]
     Active Substance: CLONIDINE

REACTIONS (9)
  - Bradycardia [None]
  - Acute kidney injury [None]
  - Hyperthermia [None]
  - Hypotension [None]
  - Hepatocellular injury [None]
  - Incorrect dose administered [None]
  - Accidental overdose [None]
  - Off label use [None]
  - Medication error [None]
